FAERS Safety Report 8383893-5 (Version None)
Quarter: 2012Q2

REPORT INFORMATION
  Report Type: 
  Country: None (occurrence: None)
  Receive Date: 20120524
  Receipt Date: 20120515
  Transmission Date: 20120825
  Serious: Yes (Hospitalization, Other)
  Sender: FDA-Public Use
  Company Number: FR-ROCHE-1064306

PATIENT
  Age: 60 Year
  Sex: Male
  Weight: 66 kg

DRUGS (2)
  1. AVASTIN [Suspect]
     Indication: COLON CANCER METASTATIC
     Route: 042
     Dates: start: 20110626, end: 20120206
  2. XELODA [Concomitant]
     Indication: COLON CANCER METASTATIC
     Route: 048
     Dates: start: 20110620

REACTIONS (4)
  - HEMIPARESIS [None]
  - EPILEPSY [None]
  - HYPERTENSION [None]
  - HAEMORRHAGIC STROKE [None]
